FAERS Safety Report 6128229-5 (Version None)
Quarter: 2009Q1

REPORT INFORMATION
  Report Type: 
  Country: None (occurrence: None)
  Receive Date: 20090323
  Receipt Date: 20090310
  Transmission Date: 20090719
  Serious: Yes (Other)
  Sender: FDA-Public Use
  Company Number: US-PFIZER INC-2006048659

PATIENT
  Sex: Female

DRUGS (3)
  1. PROVERA [Suspect]
     Indication: MENOPAUSAL SYMPTOMS
     Dosage: 2.5 MG + 5 MG, UNK
     Route: 048
     Dates: start: 19900101, end: 19990101
  2. PREMARIN [Suspect]
     Indication: MENOPAUSAL SYMPTOMS
     Dosage: 0.3MG/0.625MG
     Dates: start: 19900101, end: 19990101
  3. PREMPRO [Suspect]
     Indication: MENOPAUSAL SYMPTOMS
     Dosage: UNK
     Dates: start: 19960101, end: 19990101

REACTIONS (1)
  - BREAST CANCER IN SITU [None]
